FAERS Safety Report 10035384 (Version 1)
Quarter: 2014Q1

REPORT INFORMATION
  Report Type: Spontaneous
  Country: US (occurrence: US)
  Receive Date: 20140325
  Receipt Date: 20140325
  Transmission Date: 20141002
  Serious: No
  Sender: FDA-Public Use
  Company Number: US-PFIZER INC-2014081991

PATIENT
  Age: 69 Year
  Sex: Male

DRUGS (4)
  1. SUTENT [Suspect]
     Indication: RENAL CANCER
     Dosage: 50 MG, UNK
     Dates: start: 20140224
  2. TAMSULOSIN HYDROCHLORIDE [Concomitant]
     Dosage: UNK
  3. ACETAMINOPHEN W/OXYCODONE [Concomitant]
     Dosage: UNK
  4. CITALOPRAM HYDROBROMIDE [Concomitant]
     Dosage: UNK

REACTIONS (3)
  - Fatigue [Unknown]
  - Diarrhoea [Unknown]
  - Nausea [Unknown]
